FAERS Safety Report 20663791 (Version 3)
Quarter: 2022Q3

REPORT INFORMATION
  Report Type: Report from Study
  Country: US (occurrence: US)
  Receive Date: 20220401
  Receipt Date: 20220713
  Transmission Date: 20221027
  Serious: Yes (Hospitalization, Other)
  Sender: FDA-Public Use
  Company Number: US-BRISTOL-MYERS SQUIBB COMPANY-2022-012283

PATIENT
  Age: 84 Year
  Sex: Male
  Weight: 61.96 kg

DRUGS (11)
  1. AZACITIDINE [Suspect]
     Active Substance: AZACITIDINE
     Indication: Myelodysplastic syndrome
     Dosage: 7 DAYS WITHIN THE FIRST 9 CALENDAR DAYS OF EACH 28-DAY CYCLE
     Route: 058
     Dates: start: 20210714, end: 20210823
  2. AZACITIDINE [Suspect]
     Active Substance: AZACITIDINE
     Dosage: 7 DAYS WITHIN THE FIRST 9 CALENDAR DAYS OF EACH 28-DAY CYCLE
     Route: 058
     Dates: start: 20210922
  3. VENETOCLAX [Suspect]
     Active Substance: VENETOCLAX
     Indication: Myelodysplastic syndrome
     Dosage: DAYS 1 - 14 OF EACH 28-DAY CYCLE
     Route: 048
     Dates: start: 20210714, end: 20210823
  4. VENETOCLAX [Suspect]
     Active Substance: VENETOCLAX
     Dosage: DAYS 1 - 14 OF EACH 28-DAY CYCLE
     Route: 048
     Dates: start: 20210922
  5. PLAVIX [Concomitant]
     Active Substance: CLOPIDOGREL BISULFATE
     Indication: Peripheral arterial occlusive disease
     Route: 048
     Dates: start: 20160101
  6. PROSCAR [Concomitant]
     Active Substance: FINASTERIDE
     Indication: Benign prostatic hyperplasia
     Dosage: 1 IN 1 D
     Route: 048
     Dates: start: 20160101
  7. CRESTOR [Concomitant]
     Active Substance: ROSUVASTATIN CALCIUM
     Indication: Hyperlipidaemia
     Dosage: 1 IN 1 D
     Route: 048
     Dates: start: 20160101
  8. ACYCLOVIR [Concomitant]
     Active Substance: ACYCLOVIR
     Indication: Prophylaxis
     Dosage: 2 IN 1 D
     Route: 048
  9. LEVAQUIN [Concomitant]
     Active Substance: LEVOFLOXACIN
     Indication: Prophylaxis
     Dosage: 2 IN 1 D
     Route: 048
     Dates: start: 20210722
  10. ZOFRAN [Concomitant]
     Active Substance: ONDANSETRON HYDROCHLORIDE
     Indication: Nausea
     Dosage: 1 IN 1 AS REQUIRED
     Route: 048
     Dates: start: 20210715
  11. ACYCLOVIR [Concomitant]
     Active Substance: ACYCLOVIR
     Indication: Prophylaxis
     Dosage: 2 IN 1 D
     Route: 048
     Dates: start: 20210722

REACTIONS (1)
  - Aspiration [Recovered/Resolved]

NARRATIVE: CASE EVENT DATE: 20210823
